FAERS Safety Report 11687535 (Version 1)
Quarter: 2015Q4

REPORT INFORMATION
  Report Type: Spontaneous
  Country: JP (occurrence: JP)
  Receive Date: 20151030
  Receipt Date: 20151030
  Transmission Date: 20160304
  Serious: Yes (Life-Threatening)
  Sender: FDA-Public Use
  Company Number: JP-BAYER-2015-451070

PATIENT
  Sex: Male
  Weight: 285 kg

DRUGS (2)
  1. NIFEDIPINE. [Suspect]
     Active Substance: NIFEDIPINE
     Dosage: UNK
     Route: 064
  2. NIFEDIPINE. [Suspect]
     Active Substance: NIFEDIPINE
     Dosage: UNK
     Route: 064

REACTIONS (6)
  - Maternal exposure during pregnancy [None]
  - Bradycardia foetal [Recovered/Resolved]
  - Premature baby [None]
  - Low birth weight baby [None]
  - Small for dates baby [Recovered/Resolved]
  - Foetal distress syndrome [Recovered/Resolved]
